FAERS Safety Report 6529960-X (Version None)
Quarter: 2010Q1

REPORT INFORMATION
  Report Type: 
  Country: None (occurrence: None)
  Receive Date: 20100107
  Receipt Date: 20091228
  Transmission Date: 20100710
  Serious: Yes (Other)
  Sender: FDA-Public Use
  Company Number: NL-ABBOTT-09P-114-0616545-00

PATIENT
  Sex: Female
  Weight: 71 kg

DRUGS (8)
  1. REDUCTIL 10MG [Suspect]
     Indication: OBESITY
     Route: 048
     Dates: start: 20091204, end: 20091208
  2. REDUCTIL 10MG [Suspect]
     Dates: start: 20010101, end: 20040101
  3. TOLBUTAMIDE [Concomitant]
     Indication: DRUG USE FOR UNKNOWN INDICATION
     Route: 048
  4. DOMPERIDON [Concomitant]
     Indication: DRUG USE FOR UNKNOWN INDICATION
     Route: 048
  5. PARACETAMOL WITH CODEINE PHOSPHATE [Concomitant]
     Indication: DRUG USE FOR UNKNOWN INDICATION
     Dosage: 500/20MG, 4 TIMES DAILY AS NEEDED
     Route: 048
  6. EFFEXOR XR [Concomitant]
     Indication: DRUG USE FOR UNKNOWN INDICATION
     Route: 048
  7. METFORMIN HCL [Concomitant]
     Indication: DRUG USE FOR UNKNOWN INDICATION
     Route: 048
  8. ANTI-WASP INJECTION [Concomitant]
     Indication: ALLERGY TO ARTHROPOD STING
     Route: 050

REACTIONS (7)
  - ABASIA [None]
  - ANGIOEDEMA [None]
  - CHILLS [None]
  - DYSPNOEA [None]
  - ERYTHEMA [None]
  - PRURITUS [None]
  - SWELLING FACE [None]
